FAERS Safety Report 12613375 (Version 1)
Quarter: 2016Q3

REPORT INFORMATION
  Report Type: Spontaneous
  Country: CA (occurrence: None)
  Receive Date: 20160801
  Receipt Date: 20160801
  Transmission Date: 20161109
  Serious: Yes (Death, Hospitalization)
  Sender: FDA-Public Use
  Company Number: None

PATIENT
  Age: 64 Year
  Sex: Male
  Weight: 86 kg

DRUGS (6)
  1. ATORVASTATIN [Concomitant]
     Active Substance: ATORVASTATIN
  2. MEMANTINE HYDROCHLORIDE. [Suspect]
     Active Substance: MEMANTINE HYDROCHLORIDE
     Dates: end: 20160605
  3. DECADRON [Concomitant]
     Active Substance: DEXAMETHASONE
  4. EURO-FER [Concomitant]
  5. VITAMINE-D [Concomitant]
  6. TIAZAC [Concomitant]
     Active Substance: DILTIAZEM HYDROCHLORIDE

REACTIONS (8)
  - Paraesthesia [None]
  - Asthenia [None]
  - Dry mouth [None]
  - Fatigue [None]
  - Blood glucose increased [None]
  - Decreased appetite [None]
  - General physical health deterioration [None]
  - Dyspnoea [None]

NARRATIVE: CASE EVENT DATE: 20160605
